FAERS Safety Report 5157239-X (Version None)
Quarter: 2006Q4

REPORT INFORMATION
  Report Type: 
  Country: None (occurrence: None)
  Receive Date: 20061127
  Receipt Date: 20061114
  Transmission Date: 20070319
  Serious: Yes (Other)
  Sender: FDA-Public Use
  Company Number: PHHO2006NZ19723

PATIENT
  Age: 58 Year
  Sex: Female

DRUGS (12)
  1. CLOZARIL [Suspect]
     Indication: PSYCHOTIC DISORDER
     Route: 048
  2. CLOZARIL [Suspect]
     Dosage: 12.5 MG, BID
     Route: 048
     Dates: start: 20050414, end: 20060418
  3. CLOZARIL [Suspect]
     Dosage: 37.5 MG/DAY
     Route: 048
     Dates: start: 20050419, end: 20060421
  4. CLOZARIL [Suspect]
     Dosage: 12.5 MG, BID
     Route: 048
     Dates: start: 20050422, end: 20050423
  5. HALOPERIDOL [Concomitant]
  6. TEMAZEPAM [Concomitant]
  7. VALPROATE SODIUM [Suspect]
  8. COMBIVENT [Concomitant]
  9. ACETAMINOPHEN [Concomitant]
  10. SALBUTAMOL [Concomitant]
  11. DOCUSATE [Concomitant]
  12. SENNA [Concomitant]

REACTIONS (4)
  - NEPHRITIS INTERSTITIAL [None]
  - RENAL IMPAIRMENT [None]
  - SEDATION [None]
  - THROMBOPHLEBITIS SUPERFICIAL [None]
